FAERS Safety Report 14119376 (Version 2)
Quarter: 2018Q4

REPORT INFORMATION
  Report Type: Spontaneous
  Country: US (occurrence: US)
  Receive Date: 20171024
  Receipt Date: 20181119
  Transmission Date: 20190204
  Serious: No
  Sender: FDA-Public Use
  Company Number: US-PFIZER INC-2017159298

PATIENT
  Age: 63 Year
  Sex: Female
  Weight: 82.99 kg

DRUGS (2)
  1. XELJANZ [Suspect]
     Active Substance: TOFACITINIB CITRATE
     Indication: RHEUMATOID ARTHRITIS
     Dosage: 5 MG, 2X/DAY
     Route: 048
  2. LYRICA [Concomitant]
     Active Substance: PREGABALIN
     Indication: FIBROMYALGIA
     Dosage: 10 MG, 1X/DAY
     Route: 048

REACTIONS (4)
  - Fatigue [Unknown]
  - Weight increased [Not Recovered/Not Resolved]
  - Nasopharyngitis [Unknown]
  - Hepatic enzyme increased [Not Recovered/Not Resolved]
